FAERS Safety Report 4499155-2 (Version None)
Quarter: 2004Q4

REPORT INFORMATION
  Report Type: 
  Country: None (occurrence: None)
  Receive Date: 20041109
  Receipt Date: 20041109
  Transmission Date: 20050328
  Serious: No
  Sender: FDA-Public Use
  Company Number: None

PATIENT
  Sex: Female
  Weight: 69.8539 kg

DRUGS (6)
  1. PRIMIDONE [Suspect]
     Dosage: 250 MG PO TID
     Route: 048
  2. FOLIC ACID [Concomitant]
  3. LORAZEPAM [Concomitant]
  4. KLONOPIN [Concomitant]
  5. TAMOXIFEN CITRATE [Concomitant]
  6. ACTONEL [Concomitant]

REACTIONS (2)
  - CONVULSION [None]
  - PHARMACEUTICAL PRODUCT COMPLAINT [None]
